FAERS Safety Report 18148920 (Version 1)
Quarter: 2020Q3

REPORT INFORMATION
  Report Type: Spontaneous
  Country: US (occurrence: US)
  Receive Date: 20200814
  Receipt Date: 20200814
  Transmission Date: 20201103
  Serious: No
  Sender: FDA-Public Use
  Company Number: US-AMGEN-USASP2020129934

PATIENT
  Age: 33 Year
  Sex: Female

DRUGS (3)
  1. OTEZLA [Suspect]
     Active Substance: APREMILAST
     Indication: PSORIASIS
     Dosage: 28 DAY START PACK AS DIRECTED
     Route: 048
     Dates: start: 20200703
  2. AUROVELA FE 1/20 [Concomitant]
     Active Substance: ETHINYL ESTRADIOL\NORETHINDRONE ACETATE
  3. NORETHINDRONE [NORETHISTERONE] [Concomitant]
     Active Substance: NORETHINDRONE
     Dosage: UNK

REACTIONS (2)
  - Headache [Unknown]
  - Product dose omission issue [Unknown]

NARRATIVE: CASE EVENT DATE: 2020
